FAERS Safety Report 24040661 (Version 1)
Quarter: 2024Q3

REPORT INFORMATION
  Report Type: Spontaneous
  Country: ZA (occurrence: None)
  Receive Date: 20240702
  Receipt Date: 20240702
  Transmission Date: 20241017
  Serious: Yes (Hospitalization)
  Sender: ASTRAZENECA
  Company Number: 2024A145843

PATIENT
  Age: 24837 Day
  Sex: Female

DRUGS (8)
  1. DAPAGLIFLOZIN [Suspect]
     Active Substance: DAPAGLIFLOZIN
     Indication: Diabetes mellitus
     Route: 048
  2. ROSUVASTATIN CALCIUM [Concomitant]
     Active Substance: ROSUVASTATIN CALCIUM
  3. SEREFLO HFA 120 DOSE 25/250 MCG [Concomitant]
  4. BISOPROLOL FUMARATE [Concomitant]
     Active Substance: BISOPROLOL FUMARATE
  5. SPIRACTIN [Concomitant]
  6. ASPIRIN [Concomitant]
     Active Substance: ASPIRIN
  7. SAGALATIN [Concomitant]
  8. PNEUMOVAX 23 [Concomitant]
     Active Substance: PNEUMOCOCCAL VACCINE, POLYVALENT 23

REACTIONS (3)
  - Chronic obstructive pulmonary disease [Unknown]
  - Pneumothorax [Unknown]
  - Pneumonia [Unknown]
